FAERS Safety Report 5723355-4 (Version None)
Quarter: 2008Q2

REPORT INFORMATION
  Report Type: 
  Country: None (occurrence: None)
  Receive Date: 20080429
  Receipt Date: 20080429
  Transmission Date: 20081010
  Serious: Yes (Life-Threatening)
  Sender: FDA-Public Use
  Company Number: None

PATIENT
  Sex: Male
  Weight: 79.3795 kg

DRUGS (3)
  1. DIGITEK 0.125MG BERTEK PHA [Suspect]
     Indication: CARDIAC FAILURE CONGESTIVE
     Dosage: ONE DAILY BUCCAL
     Route: 002
     Dates: start: 20080409, end: 20080426
  2. DIGITEK 0.125MG BERTEK PHA [Suspect]
     Indication: CORONARY ARTERY BYPASS
     Dosage: ONE DAILY BUCCAL
     Route: 002
     Dates: start: 20080409, end: 20080426
  3. DIGITEK 0.125MG BERTEK PHA [Suspect]

REACTIONS (5)
  - ASTHENIA [None]
  - BLOOD PRESSURE DIASTOLIC DECREASED [None]
  - DIZZINESS [None]
  - HYPOTENSION [None]
  - PHARMACEUTICAL PRODUCT COMPLAINT [None]
